FAERS Safety Report 13098046 (Version 1)
Quarter: 2017Q1

REPORT INFORMATION
  Report Type: Spontaneous
  Country: US (occurrence: US)
  Receive Date: 20170109
  Receipt Date: 20170109
  Transmission Date: 20170428
  Serious: No
  Sender: FDA-Public Use
  Company Number: US-GE HEALTHCARE MEDICAL DIAGNOSTICS-DATS-PR-1612S-0070

PATIENT
  Age: 55 Year
  Sex: Male

DRUGS (12)
  1. DATSCAN [Suspect]
     Active Substance: IODINE\IOFLUPANE I-123
     Indication: HYPOKINESIA
  2. ESTRADIOL. [Concomitant]
     Active Substance: ESTRADIOL
  3. ALDACTONE [Concomitant]
     Active Substance: SPIRONOLACTONE
  4. LANTUS [Concomitant]
     Active Substance: INSULIN GLARGINE
  5. DATSCAN [Suspect]
     Active Substance: IODINE\IOFLUPANE I-123
     Indication: FATIGUE
  6. HUMALOG [Concomitant]
     Active Substance: INSULIN LISPRO
  7. PROMETRIUM [Concomitant]
     Active Substance: PROGESTERONE
  8. HYDROCHLOROTHIAZIDE. [Concomitant]
     Active Substance: HYDROCHLOROTHIAZIDE
  9. NEOMYCIN [Concomitant]
     Active Substance: NEOMYCIN
  10. DATSCAN [Suspect]
     Active Substance: IODINE\IOFLUPANE I-123
     Indication: DIAGNOSTIC PROCEDURE
  11. DATSCAN [Suspect]
     Active Substance: IODINE\IOFLUPANE I-123
     Indication: PARKINSONISM
     Route: 042
     Dates: start: 20161201, end: 20161201
  12. COZAAR [Concomitant]
     Active Substance: LOSARTAN POTASSIUM

REACTIONS (2)
  - Radioisotope scan abnormal [Recovered/Resolved]
  - No adverse event [Recovered/Resolved]

NARRATIVE: CASE EVENT DATE: 20161201
